FAERS Safety Report 17754684 (Version 1)
Quarter: 2020Q2

REPORT INFORMATION
  Report Type: Spontaneous
  Country: AU (occurrence: AU)
  Receive Date: 20200506
  Receipt Date: 20200506
  Transmission Date: 20200714
  Serious: Yes (Disabling)
  Sender: FDA-Public Use
  Company Number: AU-BAXTER-2020BAX008586

PATIENT
  Age: 29 Year
  Sex: Male

DRUGS (7)
  1. FINOMEL [Suspect]
     Active Substance: AMINO ACIDS\DEXTROSE\ELECTROLYTES NOS\SOYBEAN OIL
     Route: 065
     Dates: start: 20200410
  2. FINOMEL [Suspect]
     Active Substance: AMINO ACIDS\DEXTROSE\ELECTROLYTES NOS\SOYBEAN OIL
     Indication: PARENTERAL NUTRITION
     Route: 065
  3. STERILE WATER [Suspect]
     Active Substance: WATER
     Indication: PARENTERAL NUTRITION
     Route: 065
  4. CERNEVIT [Suspect]
     Active Substance: VITAMINS
     Indication: PARENTERAL NUTRITION
     Route: 065
  5. ADULT TRACE ELEMENTS [Suspect]
     Active Substance: MINERALS
     Indication: PARENTERAL NUTRITION
     Route: 065
  6. SODIUM ASCORBATE [Suspect]
     Active Substance: SODIUM ASCORBATE
     Indication: PARENTERAL NUTRITION
     Dosage: 15G/50 ML
     Route: 065
  7. POTASSIUM CHLORIDE. [Suspect]
     Active Substance: POTASSIUM CHLORIDE
     Indication: PARENTERAL NUTRITION
     Dosage: 3 MMOL/ML
     Route: 065

REACTIONS (3)
  - Nausea [Not Recovered/Not Resolved]
  - Incorrect drug administration rate [Unknown]
  - Procedural nausea [Recovering/Resolving]

NARRATIVE: CASE EVENT DATE: 202004
